FAERS Safety Report 8019031-8 (Version None)
Quarter: 2012Q1

REPORT INFORMATION
  Report Type: 
  Country: None (occurrence: None)
  Receive Date: 20120103
  Receipt Date: 20111223
  Transmission Date: 20120608
  Serious: Yes (Hospitalization, Other)
  Sender: FDA-Public Use
  Company Number: BE-ELI_LILLY_AND_COMPANY-BE201112001904

PATIENT
  Sex: Male

DRUGS (9)
  1. LIPITOR [Concomitant]
     Dosage: 20 MG, QD
  2. CARBAMAZEPINE [Concomitant]
  3. RANITIDINE [Concomitant]
     Dosage: 300 MG, QD
  4. CLONAZEPAM [Concomitant]
     Dosage: 1 MG, QD
  5. AMLODIPINE BESYLATE [Concomitant]
     Dosage: UNK, QD
  6. OLANZAPINE [Suspect]
     Dosage: 405 MG, UNK
  7. SEROQUEL [Concomitant]
     Dosage: 200 MG, QD
  8. OLANZAPINE [Suspect]
     Dosage: 300 MG, UNK
  9. OLANZAPINE [Suspect]
     Dosage: 405 MG, UNKNOWN
     Route: 030
     Dates: start: 20111110

REACTIONS (5)
  - CONFUSIONAL STATE [None]
  - OFF LABEL USE [None]
  - SEDATION [None]
  - HAEMATEMESIS [None]
  - HYPOTENSION [None]
